FAERS Safety Report 8394757-5 (Version None)
Quarter: 2012Q1

REPORT INFORMATION
  Report Type: 
  Country: None (occurrence: None)
  Receive Date: 20120323
  Receipt Date: 20110502
  Transmission Date: 20120608
  Serious: Yes (Hospitalization)
  Sender: FDA-Public Use
  Company Number: 163-21880-11050401

PATIENT
  Age: 70 Year
  Sex: Male
  Weight: 73.9 kg

DRUGS (10)
  1. REVLIMID [Suspect]
     Indication: MULTIPLE MYELOMA
     Dosage: 25 MG, 1 IN 1 D, PO
     Route: 048
     Dates: start: 20080601
  2. ASPIRIN [Concomitant]
  3. OMEPRAZOLE [Concomitant]
  4. MEDROL [Concomitant]
  5. ACYCLOVIR [Concomitant]
  6. REVLIMID [Suspect]
     Indication: MULTIPLE MYELOMA
     Dosage: 10 MG, 1 IN 1 D, PO; 15 MG, 1 IN 1 D, PO; 10 MG, 1 IN 1 D, PO; 10 MG, 1 IN 1 D, PO
     Route: 048
     Dates: start: 20110301
  7. REVLIMID [Suspect]
     Indication: MULTIPLE MYELOMA
     Dosage: 10 MG, 1 IN 1 D, PO; 15 MG, 1 IN 1 D, PO; 10 MG, 1 IN 1 D, PO; 10 MG, 1 IN 1 D, PO
     Route: 048
     Dates: start: 20110403, end: 20110416
  8. REVLIMID [Suspect]
     Indication: MULTIPLE MYELOMA
     Dosage: 10 MG, 1 IN 1 D, PO; 15 MG, 1 IN 1 D, PO; 10 MG, 1 IN 1 D, PO; 10 MG, 1 IN 1 D, PO
     Route: 048
     Dates: start: 20101101
  9. REVLIMID [Suspect]
     Indication: MULTIPLE MYELOMA
     Dosage: 10 MG, 1 IN 1 D, PO; 15 MG, 1 IN 1 D, PO; 10 MG, 1 IN 1 D, PO; 10 MG, 1 IN 1 D, PO
     Route: 048
     Dates: start: 20110101
  10. DOCUSATE [Concomitant]

REACTIONS (9)
  - DYSPNOEA EXERTIONAL [None]
  - DEHYDRATION [None]
  - ANAEMIA [None]
  - DECREASED APPETITE [None]
  - NASOPHARYNGITIS [None]
  - COUGH [None]
  - NIGHT SWEATS [None]
  - FATIGUE [None]
  - PRESYNCOPE [None]
